FAERS Safety Report 10210877 (Version 1)
Quarter: 2014Q2

REPORT INFORMATION
  Report Type: Spontaneous
  Country: US (occurrence: US)
  Receive Date: 20140602
  Receipt Date: 20140602
  Transmission Date: 20141212
  Serious: Yes (Hospitalization)
  Sender: FDA-Public Use
  Company Number: US-B.I. PHARMACEUTICALS,INC./RIDGEFIELD-2014-BI-24071BP

PATIENT
  Age: 72 Year
  Sex: Female

DRUGS (19)
  1. PRADAXA [Suspect]
     Indication: ATRIAL FIBRILLATION
     Dosage: 300 MG
     Route: 048
     Dates: start: 2011, end: 20140523
  2. PRADAXA [Suspect]
     Dosage: 300 MG
     Route: 048
     Dates: start: 20140528
  3. COMBIVENT [Suspect]
     Indication: LUNG DISORDER
     Dosage: STRENGTH: 18 MCG / 103 MCG; DAILY DOSE: 144 MCG / 824 MCG
     Route: 048
     Dates: start: 2006
  4. GLYBURIDE [Concomitant]
     Indication: TYPE 2 DIABETES MELLITUS
     Dosage: 5 MG
     Route: 048
  5. SOTALOL [Concomitant]
     Indication: TACHYCARDIA
     Dosage: 160 MG
     Route: 048
  6. LANOXIN [Concomitant]
     Indication: ARRHYTHMIA
     Dosage: 0.125 MG
     Route: 048
  7. ASPIRIN [Concomitant]
     Indication: CARDIAC FAILURE CONGESTIVE
     Dosage: 81 MG
     Route: 048
  8. COREG [Concomitant]
     Indication: ARRHYTHMIA
     Dosage: 25 MG
     Route: 048
  9. TRILIPIX [Concomitant]
     Indication: BLOOD CHOLESTEROL INCREASED
     Dosage: 135 MG
     Route: 048
  10. LIPITOR [Concomitant]
     Indication: BLOOD CHOLESTEROL INCREASED
     Dosage: 20 MG
     Route: 048
  11. POTASSIUM [Concomitant]
     Indication: HYPOKALAEMIA
     Dosage: 20 MEQ
     Route: 048
  12. FEMARA [Concomitant]
     Indication: CARDIAC FAILURE CONGESTIVE
     Dosage: 2.5 MG
     Route: 048
  13. TRAMADOL [Concomitant]
     Indication: NEURALGIA
     Dosage: 150 MG
     Route: 048
  14. FUROSEMIDE [Concomitant]
     Indication: CARDIAC FAILURE CONGESTIVE
     Dosage: 20 MG
     Route: 048
  15. CENTRUM [Concomitant]
     Indication: ROUTINE HEALTH MAINTENANCE
     Dosage: 1 ANZ
     Route: 048
  16. CALTRATE [Concomitant]
     Indication: CALCIUM DEFICIENCY
     Dosage: 1200 MG
     Route: 048
  17. DOXYCILLIAN [Concomitant]
     Indication: BREAST CELLULITIS
     Route: 048
  18. METHOCARBAMOL [Concomitant]
     Indication: NEURALGIA
     Dosage: 2000 MG
     Route: 048
  19. HYDROCODONE [Concomitant]
     Indication: NEURALGIA
     Dosage: 20 MG
     Route: 048

REACTIONS (4)
  - Breast cellulitis [Recovered/Resolved]
  - Sciatic nerve neuropathy [Not Recovered/Not Resolved]
  - Heart rate increased [Not Recovered/Not Resolved]
  - Medication error [Recovered/Resolved]
